FAERS Safety Report 8398207-4 (Version None)
Quarter: 2012Q2

REPORT INFORMATION
  Report Type: 
  Country: None (occurrence: None)
  Receive Date: 20120531
  Receipt Date: 20120524
  Transmission Date: 20120825
  Serious: Yes (Death, Life-Threatening, Hospitalization)
  Sender: FDA-Public Use
  Company Number: PHHO2008IT06575

PATIENT
  Sex: Female
  Weight: 66 kg

DRUGS (7)
  1. SERTRALINE HYDROCHLORIDE [Concomitant]
  2. IBUPROFEN [Concomitant]
  3. SOLU-MEDROL [Suspect]
     Indication: MULTIPLE SCLEROSIS RELAPSE
     Dosage: UNK
     Dates: start: 20080516, end: 20080520
  4. GILENYA [Suspect]
     Indication: MULTIPLE SCLEROSIS
     Dosage: 1.25 MG, QD
     Dates: start: 20070712, end: 20080523
  5. FLURBIPROFEN [Concomitant]
  6. CLARITHROMYCIN [Concomitant]
  7. ACETAMINOPHEN [Concomitant]

REACTIONS (42)
  - HYDROTHORAX [None]
  - ASCITES [None]
  - FIBRIN D DIMER INCREASED [None]
  - VIRAEMIA [None]
  - HEPATIC FUNCTION ABNORMAL [None]
  - MUSCULAR WEAKNESS [None]
  - VIRAL OESOPHAGITIS [None]
  - HERPES ZOSTER DISSEMINATED [None]
  - ASTHENIA [None]
  - BLISTER [None]
  - BRADYCARDIA [None]
  - ACUTE HEPATIC FAILURE [None]
  - PRESYNCOPE [None]
  - PERICARDIAL EFFUSION [None]
  - UTERINE LEIOMYOMA [None]
  - OVARIAN CYST [None]
  - TENSION HEADACHE [None]
  - PARAESTHESIA [None]
  - DEPRESSION [None]
  - VENOUS INSUFFICIENCY [None]
  - IMMUNOSUPPRESSION [None]
  - ABDOMINAL PAIN UPPER [None]
  - TRANSAMINASES INCREASED [None]
  - MULTIPLE SCLEROSIS RELAPSE [None]
  - HYPOAESTHESIA [None]
  - NON-ALCOHOLIC STEATOHEPATITIS [None]
  - OEDEMA [None]
  - PERICARDITIS [None]
  - FIBROSIS [None]
  - ATELECTASIS [None]
  - HEPATITIS [None]
  - GAIT DISTURBANCE [None]
  - THROMBOCYTOPENIA [None]
  - PETECHIAE [None]
  - RENAL HAEMORRHAGE [None]
  - HAEMATURIA [None]
  - HAEMATOMA [None]
  - HEPATIC NECROSIS [None]
  - FATIGUE [None]
  - DISSEMINATED INTRAVASCULAR COAGULATION [None]
  - ALOPECIA [None]
  - HEMIPARESIS [None]
